FAERS Safety Report 16118524 (Version 1)
Quarter: 2019Q1

REPORT INFORMATION
  Report Type: Spontaneous
  Country: FR (occurrence: FR)
  Receive Date: 20190326
  Receipt Date: 20190326
  Transmission Date: 20190418
  Serious: Yes (Hospitalization)
  Sender: FDA-Public Use
  Company Number: FR-009507513-1903FRA008186

PATIENT
  Age: 91 Year
  Sex: Female

DRUGS (7)
  1. EVISTA [Suspect]
     Active Substance: RALOXIFENE HYDROCHLORIDE
     Indication: PROPHYLAXIS
     Dosage: 1 DOSAGE FORM, QD
     Route: 048
     Dates: end: 20121219
  2. LEVOTHYROX [Concomitant]
     Active Substance: LEVOTHYROXINE
  3. BISOPROLOL [Concomitant]
     Active Substance: BISOPROLOL
  4. KALEORID [Concomitant]
     Active Substance: POTASSIUM CHLORIDE
  5. AERIUS (DESLORATADINE) [Suspect]
     Active Substance: DESLORATADINE
     Indication: PRODUCT USED FOR UNKNOWN INDICATION
     Dosage: 1 DOSAGE FORM, QD
     Route: 048
     Dates: end: 20121219
  6. XARELTO [Suspect]
     Active Substance: RIVAROXABAN
     Indication: CARDIAC DISORDER
     Dosage: 1 DOSAGE FORM, QD
     Route: 048
     Dates: end: 20121219
  7. DEBRIDAT [Suspect]
     Active Substance: TRIMEBUTINE MALEATE
     Indication: PRODUCT USED FOR UNKNOWN INDICATION
     Dosage: 2 DOSAGE FORM, QD
     Route: 048
     Dates: end: 20121220

REACTIONS (2)
  - Haematoma [Recovered/Resolved]
  - Epistaxis [Recovered/Resolved]

NARRATIVE: CASE EVENT DATE: 20121219
